FAERS Safety Report 25375562 (Version 2)
Quarter: 2025Q2

REPORT INFORMATION
  Report Type: Report from Study
  Country: CA (occurrence: CN)
  Receive Date: 20250529
  Receipt Date: 20250611
  Transmission Date: 20250717
  Serious: Yes (Other)
  Sender: HLS THERAPEUTICS
  Company Number: CA-HLS-202501291

PATIENT
  Age: 80 Year
  Sex: Male

DRUGS (6)
  1. CLOZARIL [Suspect]
     Active Substance: CLOZAPINE
     Indication: Product used for unknown indication
     Route: 048
     Dates: start: 20200118
  2. Fragmin Pre-filled Syr [Concomitant]
     Indication: Product used for unknown indication
     Dosage: INJECT 0.2ML (5000IU) SUBCUTANEOUSLY DAILY FOR 12 DAYS
     Route: 058
  3. Auro-Alendronate [Concomitant]
     Indication: Product used for unknown indication
     Dosage: 1 TABLET ORALLY ONCE A WEEK ON MONDAY BEFORE MEALS
     Route: 048
  4. ESCITALOPRAM [Concomitant]
     Active Substance: ESCITALOPRAM OXALATE
     Indication: Product used for unknown indication
     Dosage: 1/2 TABLET (5 MG) ORALLY ONCE DAILY
     Route: 048
  5. LACTULOSE [Concomitant]
     Active Substance: LACTULOSE
     Indication: Product used for unknown indication
     Dosage: 667 MG/ML, 30 ML ORALLY DAILY
     Route: 048
  6. MELATONIN [Concomitant]
     Active Substance: MELATONIN
     Indication: Product used for unknown indication
     Dosage: 1 FAST DISSOLVING TABLET ORALLY AT BEDTIME
     Route: 048

REACTIONS (1)
  - Hip fracture [Unknown]
